FAERS Safety Report 8399501-3 (Version None)
Quarter: 2012Q2

REPORT INFORMATION
  Report Type: 
  Country: None (occurrence: None)
  Receive Date: 20120531
  Receipt Date: 20120522
  Transmission Date: 20120825
  Serious: Yes (Death)
  Sender: FDA-Public Use
  Company Number: JP-FRI-1000030823

PATIENT
  Age: 81 Year
  Sex: Female

DRUGS (2)
  1. MADOPAR [Concomitant]
  2. MEMANTINE HCL [Suspect]
     Indication: DEMENTIA ALZHEIMER'S TYPE
     Dosage: 5 MG
     Route: 048
     Dates: start: 20120329, end: 20120404

REACTIONS (1)
  - CARDIAC FAILURE [None]
